FAERS Safety Report 25547640 (Version 3)
Quarter: 2025Q3

REPORT INFORMATION
  Report Type: Report from Study
  Country: CN (occurrence: CN)
  Receive Date: 20250714
  Receipt Date: 20250723
  Transmission Date: 20251021
  Serious: Yes (Other)
  Sender: ABBVIE
  Company Number: CN-JNJFOC-20250708027

PATIENT

DRUGS (3)
  1. IMBRUVICA [Suspect]
     Active Substance: IBRUTINIB
     Indication: Diffuse large B-cell lymphoma refractory
     Route: 048
  2. RITUXIMAB [Suspect]
     Active Substance: RITUXIMAB
     Indication: Diffuse large B-cell lymphoma refractory
     Route: 065
  3. LENALIDOMIDE [Suspect]
     Active Substance: LENALIDOMIDE
     Indication: Diffuse large B-cell lymphoma refractory
     Route: 048

REACTIONS (12)
  - Leukopenia [Unknown]
  - Vomiting [Unknown]
  - Thrombocytopenia [Unknown]
  - Off label use [Unknown]
  - Nausea [Unknown]
  - Neutropenia [Unknown]
  - Fatigue [Unknown]
  - Diarrhoea [Unknown]
  - Respiratory tract infection [Unknown]
  - Asthenia [Unknown]
  - Constipation [Unknown]
  - Anaemia [Unknown]
